FAERS Safety Report 12818977 (Version 3)
Quarter: 2016Q4

REPORT INFORMATION
  Report Type: Spontaneous
  Country: JP (occurrence: JP)
  Receive Date: 20161006
  Receipt Date: 20161116
  Transmission Date: 20170207
  Serious: Yes (Hospitalization, Other)
  Sender: FDA-Public Use
  Company Number: JP-GLAXOSMITHKLINE-JP2016JPN144652

PATIENT
  Age: 69 Year
  Sex: Male
  Weight: 45 kg

DRUGS (2)
  1. UNKNOWN DRUG [Concomitant]
     Active Substance: UNSPECIFIED INGREDIENT
     Dosage: UNK
  2. REQUIP [Suspect]
     Active Substance: ROPINIROLE HYDROCHLORIDE
     Indication: PARKINSON^S DISEASE
     Dosage: UNK
     Route: 048

REACTIONS (5)
  - Muscle spasms [Unknown]
  - Post-traumatic epilepsy [Recovered/Resolved]
  - Traumatic intracranial haemorrhage [Recovered/Resolved]
  - Subarachnoid haematoma [Unknown]
  - Fall [Unknown]

NARRATIVE: CASE EVENT DATE: 20161002
